FAERS Safety Report 7313607-9 (Version None)
Quarter: 2011Q1

REPORT INFORMATION
  Report Type: 
  Country: None (occurrence: None)
  Receive Date: 20110225
  Receipt Date: 20110211
  Transmission Date: 20110831
  Serious: Yes (Other)
  Sender: FDA-Public Use
  Company Number: ES-JNJFOC-20110205841

PATIENT
  Age: 41 Year
  Sex: Female

DRUGS (3)
  1. ERYTHROMYCIN [Concomitant]
     Indication: PRODUCT USED FOR UNKNOWN INDICATION
  2. ANTI-HYPERCHOLESTEROLAEMIA [Concomitant]
     Indication: HYPERCHOLESTEROLAEMIA
  3. ZALDIAR [Suspect]
     Indication: BACK PAIN
     Route: 048

REACTIONS (5)
  - DIZZINESS [None]
  - HYPERHIDROSIS [None]
  - ANURIA [None]
  - FEELING HOT [None]
  - COLD SWEAT [None]
